FAERS Safety Report 11041324 (Version 1)
Quarter: 2015Q2

REPORT INFORMATION
  Report Type: Spontaneous
  Country: US (occurrence: US)
  Receive Date: 20150416
  Receipt Date: 20150416
  Transmission Date: 20150821
  Serious: Yes (Death)
  Sender: FDA-Public Use
  Company Number: US-GE HEALTHCARE MEDICAL DIAGNOSTICS-VISP-PR-1504L-0110

PATIENT
  Age: 62 Year
  Sex: Male

DRUGS (9)
  1. FUROSEMIDE. [Concomitant]
     Active Substance: FUROSEMIDE
  2. VISIPAQUE [Suspect]
     Active Substance: IODIXANOL
     Indication: DIAGNOSTIC PROCEDURE
  3. SIMVASTATIN. [Concomitant]
     Active Substance: SIMVASTATIN
  4. INSULIN [Concomitant]
     Active Substance: INSULIN NOS
  5. GABAPENTIN. [Concomitant]
     Active Substance: GABAPENTIN
  6. ROSIGLITAZONE [Concomitant]
     Active Substance: ROSIGLITAZONE
  7. CITALOPRAM [Concomitant]
     Active Substance: CITALOPRAM HYDROBROMIDE
  8. VISIPAQUE [Suspect]
     Active Substance: IODIXANOL
     Indication: CORONARY ARTERY DISEASE
     Route: 042
  9. PANCRELIPASE. [Concomitant]
     Active Substance: PANCRELIPASE

REACTIONS (1)
  - Toxic epidermal necrolysis [Fatal]
